FAERS Safety Report 22228001 (Version 1)
Quarter: 2023Q2

REPORT INFORMATION
  Report Type: Spontaneous
  Country: US (occurrence: US)
  Receive Date: 20230419
  Receipt Date: 20230419
  Transmission Date: 20230721
  Serious: No
  Sender: FDA-Public Use
  Company Number: US-BEH-2023157435

PATIENT
  Age: 32 Year
  Sex: Female

DRUGS (3)
  1. HIZENTRA [Suspect]
     Active Substance: HUMAN IMMUNOGLOBULIN G
     Indication: Immunodeficiency common variable
     Dosage: 18 GRAM, QOW
     Route: 058
     Dates: start: 202102
  2. HIZENTRA [Suspect]
     Active Substance: HUMAN IMMUNOGLOBULIN G
     Dosage: 18 GRAM, QOW
     Route: 058
     Dates: start: 202102
  3. HIZENTRA [Suspect]
     Active Substance: HUMAN IMMUNOGLOBULIN G
     Dosage: UNK
     Route: 058
     Dates: start: 20230326

REACTIONS (7)
  - Headache [Unknown]
  - Fatigue [Unknown]
  - Infusion site erythema [Unknown]
  - Injection site warmth [Unknown]
  - Pyrexia [Recovered/Resolved]
  - Myalgia [Unknown]
  - Feeling hot [Unknown]

NARRATIVE: CASE EVENT DATE: 20230327
